FAERS Safety Report 8402511-0 (Version None)
Quarter: 2012Q2

REPORT INFORMATION
  Report Type: 
  Country: None (occurrence: None)
  Receive Date: 20120323
  Receipt Date: 20110223
  Transmission Date: 20120825
  Serious: Yes (Hospitalization, Other)
  Sender: FDA-Public Use
  Company Number: 163-21880-11010417

PATIENT
  Age: 84 Year
  Sex: Male

DRUGS (10)
  1. VASOTEC [Concomitant]
  2. AMIODARONE HCL [Concomitant]
  3. PRAVACHOL [Concomitant]
  4. DEXAMETHASONE [Concomitant]
  5. COUMADIN [Concomitant]
  6. LASIX [Concomitant]
  7. METOPROLOL TARTRATE [Concomitant]
  8. ASPIRIN [Concomitant]
  9. REVLIMID [Suspect]
     Indication: MULTIPLE MYELOMA
     Dosage: 25 MG, DAILY FOR 21/28 DAYS, PO, 15 MG, DAILY FOR 21/28 DAYS, PO
     Route: 048
     Dates: start: 20100501
  10. REVLIMID [Suspect]
     Indication: MULTIPLE MYELOMA
     Dosage: 25 MG, DAILY FOR 21/28 DAYS, PO, 15 MG, DAILY FOR 21/28 DAYS, PO
     Route: 048
     Dates: start: 20091001, end: 20100501

REACTIONS (8)
  - CHILLS [None]
  - DIARRHOEA [None]
  - BODY TEMPERATURE INCREASED [None]
  - LACERATION [None]
  - ANAEMIA [None]
  - ASTHENIA [None]
  - CONTUSION [None]
  - DYSPNOEA [None]
